FAERS Safety Report 20430855 (Version 3)
Quarter: 2023Q1

REPORT INFORMATION
  Report Type: Report from Study
  Country: US (occurrence: US)
  Receive Date: 20220204
  Receipt Date: 20230103
  Transmission Date: 20230417
  Serious: Yes (Other)
  Sender: FDA-Public Use
  Company Number: US-KYOWAKIRIN-2022BKK000981

PATIENT

DRUGS (3)
  1. CRYSVITA [Suspect]
     Active Substance: BUROSUMAB-TWZA
     Indication: Hereditary hypophosphataemic rickets
     Dosage: 50 MG, 1X/4 WEEKS
     Route: 058
     Dates: start: 20200208
  2. CRYSVITA [Suspect]
     Active Substance: BUROSUMAB-TWZA
     Indication: Hereditary hypophosphataemic rickets
     Dosage: 50 MG, 1X/4 WEEKS
     Route: 058
     Dates: start: 20200208
  3. CRYSVITA [Suspect]
     Active Substance: BUROSUMAB-TWZA
     Indication: Hereditary hypophosphataemic rickets
     Dosage: UNK
     Route: 065
     Dates: start: 20200216

REACTIONS (6)
  - Coeliac disease [Unknown]
  - Malignant melanoma [Unknown]
  - Chondromalacia [Unknown]
  - Meniscus injury [Unknown]
  - Blood parathyroid hormone increased [Unknown]
  - Product dose omission issue [Unknown]
